FAERS Safety Report 8354337-4 (Version None)
Quarter: 2012Q2

REPORT INFORMATION
  Report Type: 
  Country: None (occurrence: None)
  Receive Date: 20120511
  Receipt Date: 20120427
  Transmission Date: 20120825
  Serious: Yes (Hospitalization)
  Sender: FDA-Public Use
  Company Number: VE-ROCHE-1067631

PATIENT
  Sex: Female

DRUGS (1)
  1. XOLAIR [Suspect]
     Indication: ASTHMA
     Dosage: LAST INFUSIOIN RECEIVED ON 12/MAR/2012
     Route: 058
     Dates: start: 20111001

REACTIONS (1)
  - RESPIRATORY FAILURE [None]
